FAERS Safety Report 19486002 (Version 10)
Quarter: 2024Q4

REPORT INFORMATION
  Report Type: Spontaneous
  Country: US (occurrence: US)
  Receive Date: 20210702
  Receipt Date: 20241227
  Transmission Date: 20250115
  Serious: No
  Sender: PFIZER
  Company Number: US-PFIZER INC-2021516015

PATIENT
  Age: 91 Year
  Sex: Female
  Weight: 51.7 kg

DRUGS (4)
  1. IBRANCE [Suspect]
     Active Substance: PALBOCICLIB
     Indication: Breast cancer metastatic
     Dosage: 75 MG
  2. IBRANCE [Suspect]
     Active Substance: PALBOCICLIB
     Indication: Breast cancer female
     Dosage: 100 MG
  3. IBRANCE [Suspect]
     Active Substance: PALBOCICLIB
     Dosage: 75 MG, 1X/DAY
     Dates: start: 202104
  4. IBRANCE [Suspect]
     Active Substance: PALBOCICLIB
     Dosage: 75 MG, CYCLIC (ON DAYS 1-21 OF EACH 28-DAY CYCLE) (TAKE WHOLE WITH WATER, WITH OR WITHOUT FOOD, AT T
     Route: 048

REACTIONS (6)
  - Infection [Unknown]
  - Auditory disorder [Unknown]
  - Hypoacusis [Unknown]
  - Visual impairment [Unknown]
  - COVID-19 [Unknown]
  - Product dose omission in error [Unknown]
